FAERS Safety Report 6924433-4 (Version None)
Quarter: 2010Q3

REPORT INFORMATION
  Report Type: 
  Country: None (occurrence: None)
  Receive Date: 20100811
  Receipt Date: 20100728
  Transmission Date: 20110219
  Serious: Yes (Hospitalization)
  Sender: FDA-Public Use
  Company Number: 2010P1000575

PATIENT
  Age: 66 Year
  Sex: Male
  Weight: 72.5755 kg

DRUGS (9)
  1. FENTANYL [Suspect]
     Indication: ARTHRALGIA
     Dosage: 50 MCG/HR; 1 PATCH APPLIED Q3D; TDER
     Dates: start: 20100701
  2. FENTANYL [Suspect]
     Indication: BACK PAIN
     Dosage: 50 MCG/HR; 1 PATCH APPLIED Q3D; TDER
     Dates: start: 20100701
  3. FENTANYL [Suspect]
     Indication: PAIN IN EXTREMITY
     Dosage: 50 MCG/HR; 1 PATCH APPLIED Q3D; TDER
     Dates: start: 20100701
  4. PERCOCET [Concomitant]
  5. DOXYCYCLINE HYCLATE [Concomitant]
  6. NEURONTIN [Concomitant]
  7. KLONOPIN [Concomitant]
  8. FOSAMAX [Concomitant]
  9. PREV MEDS [Concomitant]

REACTIONS (3)
  - IMPAIRED DRIVING ABILITY [None]
  - MUSCULOSKELETAL CHEST PAIN [None]
  - PNEUMONIA [None]
